FAERS Safety Report 5811083-6 (Version None)
Quarter: 2008Q3

REPORT INFORMATION
  Report Type: 
  Country: None (occurrence: None)
  Receive Date: 20080710
  Receipt Date: 20080627
  Transmission Date: 20090109
  Serious: Yes (Hospitalization)
  Sender: FDA-Public Use
  Company Number: 230005J07IRL

PATIENT
  Age: 45 Year
  Sex: Male

DRUGS (11)
  1. REBIF [Suspect]
     Indication: MULTIPLE SCLEROSIS
     Dosage: 44 MCG, 3 IN 1 WEEKS, SUBCUTANEOUS
     Route: 058
     Dates: start: 20070604
  2. AMANTADINE /00055901/ [Concomitant]
  3. ALBUMIN (HUMAN) [Concomitant]
  4. CLOPIDOGREL BISULFATE [Concomitant]
  5. LANSOPRAZOLE (OMEPRAZOLE) [Concomitant]
  6. LANSOPRAZOLE [Concomitant]
  7. RAMIPRIL /00885601/ [Concomitant]
  8. DICLOFENEC (DICLOFENAC/00372301/) [Concomitant]
  9. METOPROLOL /00376901/ [Concomitant]
  10. ATORVASTATIN CALCIUM [Concomitant]
  11. ASPIRIN [Concomitant]

REACTIONS (5)
  - CHEST PAIN [None]
  - CORONARY ARTERIAL STENT INSERTION [None]
  - HYPERHIDROSIS [None]
  - HYPERTENSION [None]
  - NAUSEA [None]
